FAERS Safety Report 17841320 (Version 3)
Quarter: 2020Q2

REPORT INFORMATION
  Report Type: Spontaneous
  Country: US (occurrence: US)
  Receive Date: 20200529
  Receipt Date: 20200606
  Transmission Date: 20200714
  Serious: No
  Sender: FDA-Public Use
  Company Number: US-UNITED THERAPEUTICS-UNT-2020-007935

PATIENT
  Sex: Female
  Weight: 53.61 kg

DRUGS (3)
  1. TADALAFIL. [Concomitant]
     Active Substance: TADALAFIL
     Indication: PRODUCT USED FOR UNKNOWN INDICATION
     Dosage: UNK
     Route: 065
  2. REMODULIN [Suspect]
     Active Substance: TREPROSTINIL
     Indication: PULMONARY ARTERIAL HYPERTENSION
     Dosage: UNK, CONTINUING
     Route: 058
     Dates: start: 20200106
  3. REMODULIN [Suspect]
     Active Substance: TREPROSTINIL
     Dosage: 0.0455 ?G/KG CONTINUOUS
     Route: 058

REACTIONS (3)
  - Dermatitis contact [Unknown]
  - Sensitive skin [Unknown]
  - Infusion site erythema [Unknown]
